FAERS Safety Report 7898858-7 (Version None)
Quarter: 2011Q4

REPORT INFORMATION
  Report Type: 
  Country: None (occurrence: None)
  Receive Date: 20111107
  Receipt Date: 20111101
  Transmission Date: 20120403
  Serious: Yes (Other)
  Sender: FDA-Public Use
  Company Number: CN-ASTRAZENECA-2011SE65937

PATIENT
  Sex: Female

DRUGS (4)
  1. PROPOFOL [Suspect]
     Dosage: MAINTAINED WITH 2.5-4 UG/ML
     Route: 042
  2. PROPOFOL [Suspect]
     Indication: ANAESTHESIA
     Dosage: 1 UG/ML
     Route: 042
  3. PROPOFOL [Suspect]
     Dosage: INCREASED TO 4 UG/ML
     Route: 042
  4. REMIFENTANIL [Suspect]
     Indication: ANAESTHESIA
     Dosage: 0.15-0.3 UG/(KG.MIN)
     Route: 042

REACTIONS (7)
  - TACHYCARDIA [None]
  - HYPERTENSION [None]
  - TACHYPNOEA [None]
  - RESPIRATORY RATE DECREASED [None]
  - HYPOTENSION [None]
  - BRADYCARDIA [None]
  - AGITATION POSTOPERATIVE [None]
